FAERS Safety Report 11527065 (Version 1)
Quarter: 2015Q3

REPORT INFORMATION
  Report Type: Spontaneous
  Country: US (occurrence: US)
  Receive Date: 20150903
  Receipt Date: 20150903
  Transmission Date: 20151125
  Serious: No
  Sender: FDA-Public Use
  Company Number: US-ELI_LILLY_AND_COMPANY-US200912004968

PATIENT
  Sex: Female

DRUGS (6)
  1. HUMALOG [Suspect]
     Active Substance: INSULIN LISPRO
     Dosage: 22 U, DAILY (1/D)
  2. HUMALOG [Suspect]
     Active Substance: INSULIN LISPRO
     Indication: DIABETES MELLITUS
     Dosage: 16 U, EACH MORNING
  3. HUMALOG [Suspect]
     Active Substance: INSULIN LISPRO
     Dosage: 24 U, EACH EVENING
     Dates: start: 2005
  4. HUMALOG [Suspect]
     Active Substance: INSULIN LISPRO
     Dosage: 24 U, EACH EVENING
  5. HUMALOG [Suspect]
     Active Substance: INSULIN LISPRO
     Dosage: 22 U, DAILY (1/D)
     Dates: start: 2005
  6. HUMALOG [Suspect]
     Active Substance: INSULIN LISPRO
     Indication: DIABETES MELLITUS
     Dosage: 16 U, EACH MORNING
     Dates: start: 2005

REACTIONS (2)
  - Stress [Unknown]
  - Memory impairment [Not Recovered/Not Resolved]

NARRATIVE: CASE EVENT DATE: 2008
